FAERS Safety Report 25120981 (Version 3)
Quarter: 2025Q2

REPORT INFORMATION
  Report Type: Spontaneous
  Country: CA (occurrence: CA)
  Receive Date: 20250326
  Receipt Date: 20250509
  Transmission Date: 20250716
  Serious: Yes (Other)
  Sender: PFIZER
  Company Number: CA-PFIZER INC-202500058164

PATIENT
  Age: 36 Year
  Sex: Female

DRUGS (2)
  1. VELSIPITY [Suspect]
     Active Substance: ETRASIMOD ARGININE
     Indication: Colitis ulcerative
     Dosage: 2 MG, 1X/DAY
     Route: 048
     Dates: start: 20241020, end: 20250423
  2. MESALAMINE [Concomitant]
     Active Substance: MESALAMINE

REACTIONS (5)
  - Sinusitis [Not Recovered/Not Resolved]
  - Drug effect less than expected [Unknown]
  - Influenza [Unknown]
  - Abdominal distension [Unknown]
  - Constipation [Unknown]
